FAERS Safety Report 6781434-7 (Version None)
Quarter: 2010Q2

REPORT INFORMATION
  Report Type: 
  Country: None (occurrence: None)
  Receive Date: 20100621
  Receipt Date: 20100616
  Transmission Date: 20101027
  Serious: Yes (Hospitalization)
  Sender: FDA-Public Use
  Company Number: IT-ROCHE-699240

PATIENT
  Sex: Female

DRUGS (7)
  1. XELODA [Suspect]
     Indication: BREAST CANCER
     Dosage: ROUTE: OS, FREQUENCY: DAILY
     Route: 048
     Dates: start: 20100101, end: 20100210
  2. SOLDESAM [Concomitant]
     Dosage: ROUTE: OS
     Route: 048
  3. SELEDIE [Concomitant]
  4. BRONCOVALEAS [Concomitant]
  5. LASIX [Concomitant]
  6. PANTORC [Concomitant]
  7. FOSAVANCE [Concomitant]

REACTIONS (2)
  - BRONCHOSPASM [None]
  - DYSPNOEA [None]
